FAERS Safety Report 5015752-X (Version None)
Quarter: 2006Q2

REPORT INFORMATION
  Report Type: 
  Country: None (occurrence: None)
  Receive Date: 20060525
  Receipt Date: 20060512
  Transmission Date: 20061013
  Serious: Yes (Death, Life-Threatening, Hospitalization, Other)
  Sender: FDA-Public Use
  Company Number: 2003EU005775

PATIENT
  Age: 13 Year
  Sex: Male
  Weight: 52 kg

DRUGS (2)
  1. PROGRAF [Suspect]
     Indication: LIVER TRANSPLANT REJECTION
     Dosage: 1.5 MG, UNKNOWN/D, ORAL
     Route: 048
     Dates: start: 19960701, end: 20021101
  2. PREDNISONE [Concomitant]

REACTIONS (7)
  - AUTOIMMUNE THROMBOCYTOPENIA [None]
  - BICYTOPENIA [None]
  - EXTRADURAL HAEMATOMA [None]
  - HEAD INJURY [None]
  - MUCOSAL HAEMORRHAGE [None]
  - PANCYTOPENIA [None]
  - SEPSIS [None]
